FAERS Safety Report 4577823-1 (Version None)
Quarter: 2005Q1

REPORT INFORMATION
  Report Type: 
  Country: None (occurrence: None)
  Receive Date: 20050209
  Receipt Date: 20050124
  Transmission Date: 20050727
  Serious: Yes (Other)
  Sender: FDA-Public Use
  Company Number: B0369194A

PATIENT
  Age: 50 Year
  Sex: Male

DRUGS (5)
  1. EPIVIR [Suspect]
     Indication: ANTIVIRAL PROPHYLAXIS
     Dosage: 300 MG PER DAY
  2. HEPATITIS B IMMUNE GLOBULIN (HUMAN) [Suspect]
     Dosage: INTRAVENOUS
     Route: 042
  3. ADEFOVIR DIPIVOXIL KIT [Concomitant]
  4. TACROLIMUS [Concomitant]
  5. METHYLPREDNISOLONE [Concomitant]

REACTIONS (4)
  - ANTI-HBS ANTIBODY POSITIVE [None]
  - CHRONIC HEPATITIS [None]
  - HEPATIC NECROSIS [None]
  - LIVER TRANSPLANT [None]
